FAERS Safety Report 9972047 (Version 1)
Quarter: 2014Q1

REPORT INFORMATION
  Report Type: Report from Study
  Country: US (occurrence: US)
  Receive Date: 20140306
  Receipt Date: 20140306
  Transmission Date: 20141002
  Serious: No
  Sender: FDA-Public Use
  Company Number: US-ABBVIE-13P-163-1150334-00

PATIENT
  Age: 48 Year
  Sex: Female

DRUGS (1)
  1. HUMIRA [Suspect]
     Indication: SCLERITIS
     Dates: start: 20130913

REACTIONS (7)
  - Off label use [Not Recovered/Not Resolved]
  - Nausea [Not Recovered/Not Resolved]
  - Migraine [Not Recovered/Not Resolved]
  - Vomiting [Not Recovered/Not Resolved]
  - Hyperhidrosis [Not Recovered/Not Resolved]
  - Feeling abnormal [Not Recovered/Not Resolved]
  - Dehydration [Not Recovered/Not Resolved]
